APPROVED DRUG PRODUCT: TERAZOSIN HYDROCHLORIDE
Active Ingredient: TERAZOSIN HYDROCHLORIDE
Strength: EQ 5MG BASE
Dosage Form/Route: CAPSULE;ORAL
Application: A075667 | Product #003 | TE Code: AB
Applicant: BIONPHARMA INC
Approved: Jul 28, 2000 | RLD: No | RS: No | Type: RX